FAERS Safety Report 13838738 (Version 10)
Quarter: 2018Q4

REPORT INFORMATION
  Report Type: Report from Study
  Country: JP (occurrence: JP)
  Receive Date: 20170807
  Receipt Date: 20181130
  Transmission Date: 20190204
  Serious: Yes (Hospitalization, Other)
  Sender: FDA-Public Use
  Company Number: PHJP2017JP024572

PATIENT
  Age: 3 Month
  Sex: Male

DRUGS (37)
  1. PREVNAR 13 [Suspect]
     Active Substance: PNEUMOCOCCAL 13-VALENT CONJUGATE VACCINE
     Dosage: 0.5 ML, QD
     Route: 058
     Dates: start: 20170227, end: 20170227
  2. SYNAGIS [Concomitant]
     Active Substance: PALIVIZUMAB
     Dosage: 50 MG, UNK
     Route: 030
     Dates: start: 20170131, end: 20170131
  3. INCREMIN [Concomitant]
     Active Substance: FERRIC PYROPHOSPHATE
     Indication: ANAEMIA NEONATAL
     Dosage: 2.5 ML, UNK
     Route: 048
     Dates: end: 20170704
  4. CLARITHROMYCIN. [Concomitant]
     Active Substance: CLARITHROMYCIN
     Indication: PROPHYLAXIS
     Dosage: 60 MG, UNK
     Route: 048
     Dates: start: 20170918, end: 20170924
  5. ONON [Concomitant]
     Active Substance: PRANLUKAST
     Indication: PROPHYLAXIS
     Dosage: 20 MG, QD
     Route: 048
     Dates: start: 20170104, end: 20170117
  6. ILARIS [Suspect]
     Active Substance: CANAKINUMAB
     Dosage: 22.5 MG, QD
     Route: 058
     Dates: start: 20170613
  7. ALFAROL [Concomitant]
     Active Substance: ALFACALCIDOL
     Indication: PRODUCT USED FOR UNKNOWN INDICATION
     Dosage: 0.5 ML, UNK
     Route: 048
     Dates: end: 20170801
  8. PREDNISOLONE. [Concomitant]
     Active Substance: PREDNISOLONE
     Indication: CHRONIC INFANTILE NEUROLOGICAL CUTANEOUS AND ARTICULAR SYNDROME
     Dosage: UNK
     Route: 048
     Dates: start: 20161129, end: 20161227
  9. CLARITHROMYCIN. [Concomitant]
     Active Substance: CLARITHROMYCIN
     Dosage: 40 MG, UNK
     Route: 048
     Dates: start: 20171107, end: 20171117
  10. ONON [Concomitant]
     Active Substance: PRANLUKAST
     Dosage: 40 MG, UNK
     Route: 048
     Dates: start: 20170801
  11. ILARIS [Suspect]
     Active Substance: CANAKINUMAB
     Dosage: 40.5 MG, QD
     Route: 058
     Dates: start: 20171107
  12. SYNAGIS [Concomitant]
     Active Substance: PALIVIZUMAB
     Dosage: 100 MG, UNK
     Route: 030
     Dates: start: 20171128, end: 20171128
  13. BIOFERMIN R [Concomitant]
     Active Substance: BACILLUS SUBTILIS\LACTOBACILLUS ACIDOPHILUS\STREPTOCOCCUS FAECAIS
     Indication: PROPHYLAXIS
     Dosage: 0.5 G, UNK
     Route: 048
     Dates: start: 20170301, end: 20170306
  14. ILARIS [Suspect]
     Active Substance: CANAKINUMAB
     Dosage: 7.5 MG, QD
     Route: 058
     Dates: start: 20170207
  15. ILARIS [Suspect]
     Active Substance: CANAKINUMAB
     Dosage: 36 MG, QD
     Route: 058
     Dates: start: 20170829
  16. SYNAGIS [Concomitant]
     Active Substance: PALIVIZUMAB
     Indication: PROPHYLAXIS
     Dosage: 50 MG, UNK
     Route: 030
     Dates: start: 20161226, end: 20161226
  17. HEPTAVAX [Concomitant]
     Indication: PROPHYLAXIS
     Dosage: 0.25 ML, UNK
     Route: 058
     Dates: start: 20170313, end: 20170313
  18. MUCODYNE-DS [Concomitant]
     Active Substance: CARBOCYSTEINE
     Indication: PROPHYLAXIS
     Dosage: 150 MG, UNK
     Route: 048
     Dates: start: 20170620, end: 20170624
  19. CLARITH [Concomitant]
     Active Substance: CLARITHROMYCIN
     Indication: PROPHYLAXIS
     Dosage: 40 MG, UNK
     Route: 048
     Dates: start: 20171128
  20. ONON [Concomitant]
     Active Substance: PRANLUKAST
     Indication: RESPIRATORY SYNCYTIAL VIRUS BRONCHIOLITIS
     Dosage: 35 MG, UNK
     Route: 048
     Dates: start: 20170721, end: 20170731
  21. ILARIS [Suspect]
     Active Substance: CANAKINUMAB
     Dosage: 10.9 MG, QD
     Route: 058
     Dates: start: 20170530
  22. ILARIS [Suspect]
     Active Substance: CANAKINUMAB
     Dosage: 34.5 MG, QD
     Route: 058
     Dates: start: 20170704
  23. ILARIS [Suspect]
     Active Substance: CANAKINUMAB
     Dosage: 37.5 MG, QD
     Route: 058
     Dates: start: 20171010
  24. HB VACCINE [Concomitant]
     Indication: PROPHYLAXIS
     Dosage: 0.25 ML, UNK
     Route: 058
     Dates: start: 20170130, end: 20170130
  25. PREDNISOLONE. [Concomitant]
     Active Substance: PREDNISOLONE
     Indication: PRODUCT USED FOR UNKNOWN INDICATION
     Dosage: 2.5 MG, UNK
     Route: 048
     Dates: end: 20161220
  26. PREVNAR 13 [Suspect]
     Active Substance: PNEUMOCOCCAL 13-VALENT CONJUGATE VACCINE
     Dosage: 0.5 ML, QD
     Route: 058
     Dates: start: 20170410, end: 20170410
  27. BIOFERMIN R [Concomitant]
     Active Substance: BACILLUS SUBTILIS\LACTOBACILLUS ACIDOPHILUS\STREPTOCOCCUS FAECAIS
     Dosage: 0.6 G, UNK
     Route: 048
     Dates: start: 20170918
  28. CLARITHROMYCIN. [Concomitant]
     Active Substance: CLARITHROMYCIN
     Dosage: 40 MG, UNK
     Route: 048
     Dates: start: 20170925, end: 20171010
  29. ILARIS [Suspect]
     Active Substance: CANAKINUMAB
     Dosage: 9.5 MG, QD
     Route: 058
     Dates: start: 20170404
  30. PREVNAR 13 [Suspect]
     Active Substance: PNEUMOCOCCAL 13-VALENT CONJUGATE VACCINE
     Indication: PROPHYLAXIS
     Dosage: 0.5 ML, QD
     Route: 058
     Dates: start: 20170123, end: 20170123
  31. SYNAGIS [Concomitant]
     Active Substance: PALIVIZUMAB
     Dosage: 100 MG, UNK
     Route: 030
     Dates: start: 20170905, end: 20170925
  32. SYNAGIS [Concomitant]
     Active Substance: PALIVIZUMAB
     Dosage: 100 MG, UNK
     Route: 030
     Dates: start: 20171017, end: 20171017
  33. ILARIS [Suspect]
     Active Substance: CANAKINUMAB
     Indication: CHRONIC INFANTILE NEUROLOGICAL CUTANEOUS AND ARTICULAR SYNDROME
     Dosage: 5.5 MG, QD
     Route: 058
     Dates: start: 20161216
  34. SYNAGIS [Concomitant]
     Active Substance: PALIVIZUMAB
     Dosage: 65 MG, UNK
     Route: 030
     Dates: start: 20170307, end: 20170307
  35. PREDNISOLONE. [Concomitant]
     Active Substance: PREDNISOLONE
     Dosage: 1.5 MG, UNK
     Route: 048
     Dates: start: 20161221, end: 20161227
  36. ASVERIN (TIPEPIDINE HIBENZATE) [Concomitant]
     Active Substance: TIPEPIDINE HIBENZATE
     Indication: PROPHYLAXIS
     Dosage: 6 MG, UNK
     Route: 048
     Dates: start: 20170620, end: 20170624
  37. CLARITHROMYCIN. [Concomitant]
     Active Substance: CLARITHROMYCIN
     Dosage: 40 MG, UNK
     Route: 048
     Dates: start: 20171027, end: 20171102

REACTIONS (11)
  - Infection [Unknown]
  - Product administered to patient of inappropriate age [Unknown]
  - Pyrexia [Recovered/Resolved]
  - Respiratory syncytial virus bronchiolitis [Recovering/Resolving]
  - Rhinorrhoea [Unknown]
  - Bronchitis [Recovering/Resolving]
  - Chronic infantile neurological cutaneous and articular syndrome [Recovering/Resolving]
  - Injection site swelling [Unknown]
  - C-reactive protein increased [Not Recovered/Not Resolved]
  - Cough [Unknown]
  - Bone formation increased [Unknown]

NARRATIVE: CASE EVENT DATE: 20170104
